FAERS Safety Report 9478995 (Version 1)
Quarter: 2013Q3

REPORT INFORMATION
  Report Type: Spontaneous
  Country: IT (occurrence: IT)
  Receive Date: 20130827
  Receipt Date: 20130827
  Transmission Date: 20140515
  Serious: Yes (Hospitalization)
  Sender: FDA-Public Use
  Company Number: IT-TEVA-428394ISR

PATIENT
  Age: 73 Year
  Sex: Female

DRUGS (2)
  1. LITIO CARBONATO [Suspect]
     Indication: SCHIZOAFFECTIVE DISORDER
     Dosage: 600 MILLIGRAM DAILY;
     Route: 048
     Dates: start: 20130101, end: 20130326
  2. SERENASE 2MG/ML [Concomitant]
     Dosage: SOLUTION FOR ORAL DROPS

REACTIONS (7)
  - Toxicity to various agents [Recovered/Resolved]
  - Headache [Recovered/Resolved]
  - Anxiety [Recovered/Resolved]
  - Sopor [Recovered/Resolved]
  - Tremor [Recovered/Resolved]
  - Condition aggravated [Recovered/Resolved]
  - Slow speech [Recovered/Resolved]
